FAERS Safety Report 24630559 (Version 1)
Quarter: 2024Q4

REPORT INFORMATION
  Report Type: Spontaneous
  Country: RO (occurrence: RO)
  Receive Date: 20241118
  Receipt Date: 20241118
  Transmission Date: 20250115
  Serious: Yes (Other)
  Sender: SANDOZ
  Company Number: RO-009507513-2411ROU002183

PATIENT
  Age: 66 Year
  Sex: Male

DRUGS (12)
  1. CARBOPLATIN [Suspect]
     Active Substance: CARBOPLATIN
     Indication: Lung adenocarcinoma
     Dosage: 4 CYCLES
     Route: 065
     Dates: start: 202303, end: 202307
  2. PEMETREXED [Suspect]
     Active Substance: PEMETREXED
     Dosage: 2 CYCLES
     Route: 065
     Dates: start: 202408, end: 202409
  3. PEMETREXED [Suspect]
     Active Substance: PEMETREXED
     Dosage: 3 CYCLES
     Route: 065
     Dates: start: 202405, end: 202406
  4. PEMETREXED [Suspect]
     Active Substance: PEMETREXED
     Indication: Lung adenocarcinoma
     Dosage: 4 CYCLES
     Route: 065
     Dates: start: 202303, end: 202307
  5. PEMETREXED [Suspect]
     Active Substance: PEMETREXED
     Dosage: UNK
     Route: 065
     Dates: start: 202308, end: 202310
  6. PEMETREXED [Suspect]
     Active Substance: PEMETREXED
     Dosage: UNK
     Route: 065
     Dates: start: 202311, end: 202403
  7. PEMBROLIZUMAB [Suspect]
     Active Substance: PEMBROLIZUMAB
     Dosage: 3 CYCLES
     Route: 065
     Dates: start: 202405, end: 202406
  8. PEMBROLIZUMAB [Suspect]
     Active Substance: PEMBROLIZUMAB
     Indication: Lung adenocarcinoma
     Dosage: 4 CYCLES
     Route: 065
     Dates: start: 202303, end: 202307
  9. PEMBROLIZUMAB [Suspect]
     Active Substance: PEMBROLIZUMAB
     Dosage: 4 CYCLES
     Route: 065
     Dates: start: 202407, end: 202409
  10. PEMBROLIZUMAB [Suspect]
     Active Substance: PEMBROLIZUMAB
     Dosage: UNK
     Route: 065
     Dates: start: 202308, end: 202310
  11. PEMBROLIZUMAB [Suspect]
     Active Substance: PEMBROLIZUMAB
     Dosage: UNK
     Route: 065
     Dates: start: 202311, end: 202403
  12. PEMBROLIZUMAB [Suspect]
     Active Substance: PEMBROLIZUMAB
     Dosage: UNK
     Route: 065
     Dates: start: 202410

REACTIONS (8)
  - Gastrointestinal polyp haemorrhage [Unknown]
  - Acute kidney injury [Unknown]
  - Gastrointestinal wall thickening [Unknown]
  - Blood urea increased [Unknown]
  - General physical health deterioration [Recovered/Resolved]
  - Dyspnoea [Unknown]
  - Asthenia [Unknown]
  - Nausea [Unknown]

NARRATIVE: CASE EVENT DATE: 20230101
